FAERS Safety Report 18650089 (Version 2)
Quarter: 2021Q1

REPORT INFORMATION
  Report Type: Spontaneous
  Country: VN (occurrence: VN)
  Receive Date: 20201222
  Receipt Date: 20210104
  Transmission Date: 20210419
  Serious: Yes (Hospitalization)
  Sender: FDA-Public Use
  Company Number: NVSC2020VN336052

PATIENT
  Age: 84 Year
  Sex: Female

DRUGS (3)
  1. ACLASTA [Suspect]
     Active Substance: ZOLEDRONIC ACID
     Indication: LUMBAR VERTEBRAL FRACTURE
     Dosage: 5 MG, UNKNOWN
     Route: 042
     Dates: start: 20201212, end: 20201212
  2. EFFERALGAN [Concomitant]
     Active Substance: ACETAMINOPHEN
     Indication: PRODUCT USED FOR UNKNOWN INDICATION
     Dosage: 500 MG, 2 PILLS/ DAY
     Route: 065
     Dates: start: 20201210, end: 20201212
  3. CALCIUM CARBONATE. [Concomitant]
     Active Substance: CALCIUM CARBONATE
     Indication: PRODUCT USED FOR UNKNOWN INDICATION
     Dosage: 1 DF, 1 AMPOULE/ DAY
     Route: 065
     Dates: start: 20201210, end: 20201212

REACTIONS (2)
  - Chills [Recovering/Resolving]
  - Loss of consciousness [Unknown]

NARRATIVE: CASE EVENT DATE: 20201212
